FAERS Safety Report 8384071-6 (Version None)
Quarter: 2012Q2

REPORT INFORMATION
  Report Type: 
  Country: None (occurrence: None)
  Receive Date: 20120524
  Receipt Date: 20120514
  Transmission Date: 20120825
  Serious: Yes (Other)
  Sender: FDA-Public Use
  Company Number: GB-TEVA-338119ISR

PATIENT
  Age: 42 Year
  Sex: Male

DRUGS (5)
  1. VENLAFAXINE [Suspect]
     Dosage: INCREASED TO 150MG DAILY
     Route: 065
  2. CLOZAPINE [Interacting]
     Indication: SCHIZOPHRENIA, PARANOID TYPE
     Dosage: 400MG
     Route: 065
  3. SCOPOLAMINE HYDROBROMIDE [Concomitant]
     Dosage: 300MCG TWICE DAILY
     Route: 065
  4. LOFEPRAMINE [Concomitant]
     Dosage: 140MG
     Route: 065
  5. DIAZEPAM [Concomitant]
     Route: 065

REACTIONS (3)
  - DRUG INTERACTION [None]
  - ANTIPSYCHOTIC DRUG LEVEL INCREASED [None]
  - PSYCHOTIC DISORDER [None]
